FAERS Safety Report 17189335 (Version 1)
Quarter: 2019Q4

REPORT INFORMATION
  Report Type: Spontaneous
  Country: SE (occurrence: SE)
  Receive Date: 20191223
  Receipt Date: 20191223
  Transmission Date: 20200122
  Serious: Yes (Hospitalization)
  Sender: FDA-Public Use
  Company Number: SE-TEVA-2019-SE-1155417

PATIENT
  Age: 53 Year
  Sex: Female

DRUGS (4)
  1. PROPAVAN [Suspect]
     Active Substance: PROPIOMAZINE
     Dosage: ^6 PROPAVAN^
     Route: 048
     Dates: start: 20180921, end: 20180921
  2. OXAZEPAM. [Suspect]
     Active Substance: OXAZEPAM
     Dosage: 3X5 MG
     Route: 048
     Dates: start: 20180921, end: 20180921
  3. CYMBALTA [Suspect]
     Active Substance: DULOXETINE HYDROCHLORIDE
     Route: 048
     Dates: start: 20180921, end: 20180921
  4. ZOPICLONE [Suspect]
     Active Substance: ZOPICLONE
     Dosage: 6X5MG
     Route: 048
     Dates: start: 20180921, end: 20180921

REACTIONS (3)
  - Intentional overdose [Unknown]
  - Intentional self-injury [Unknown]
  - Depressed level of consciousness [Unknown]

NARRATIVE: CASE EVENT DATE: 20180921
